FAERS Safety Report 10728867 (Version 1)
Quarter: 2015Q1

REPORT INFORMATION
  Report Type: Spontaneous
  Country: CH (occurrence: CH)
  Receive Date: 20150122
  Receipt Date: 20150122
  Transmission Date: 20150721
  Serious: Yes (Death, Hospitalization, Other)
  Sender: FDA-Public Use
  Company Number: CH-JNJFOC-20150104444

PATIENT
  Age: 86 Year
  Sex: Male

DRUGS (12)
  1. FORTECORTIN (DEXAMETHASONE) [Concomitant]
     Active Substance: DEXAMETHASONE
     Dosage: 50 MCG
     Route: 048
  2. IMUREK [Suspect]
     Active Substance: AZATHIOPRINE
     Indication: PRODUCT USED FOR UNKNOWN INDICATION
     Route: 048
     Dates: end: 20130223
  3. OXYNORM [Concomitant]
     Active Substance: OXYCODONE HYDROCHLORIDE
     Route: 048
  4. ZYTIGA [Suspect]
     Active Substance: ABIRATERONE ACETATE
     Indication: PROSTATE CANCER METASTATIC
     Route: 048
     Dates: start: 20130117, end: 20130223
  5. ZANIDIP [Concomitant]
     Active Substance: LERCANIDIPINE HYDROCHLORIDE
     Route: 065
  6. PANTOZOL [Concomitant]
     Active Substance: PANTOPRAZOLE SODIUM
     Route: 065
  7. NOVALGIN [Suspect]
     Active Substance: METAMIZOLE SODIUM
     Indication: PRODUCT USED FOR UNKNOWN INDICATION
     Route: 048
     Dates: start: 20130220, end: 20130223
  8. LYRICA [Concomitant]
     Active Substance: PREGABALIN
     Route: 065
  9. ASPIRIN CARDIO [Concomitant]
     Active Substance: ASPIRIN
     Route: 065
  10. AREDIA [Concomitant]
     Active Substance: PAMIDRONATE DISODIUM
     Route: 065
  11. MOTILIUM [Concomitant]
     Active Substance: DOMPERIDONE
     Route: 060
  12. EUTHYROX [Concomitant]
     Active Substance: LEVOTHYROXINE SODIUM
     Dosage: 50 MCG
     Route: 065

REACTIONS (7)
  - Torsade de pointes [Unknown]
  - Leukopenia [Fatal]
  - Acute kidney injury [Unknown]
  - Pancytopenia [Not Recovered/Not Resolved]
  - Agranulocytosis [Fatal]
  - Septic shock [Fatal]
  - Prostate cancer metastatic [Not Recovered/Not Resolved]

NARRATIVE: CASE EVENT DATE: 20130223
